FAERS Safety Report 4411958-9 (Version None)
Quarter: 2004Q2

REPORT INFORMATION
  Report Type: 
  Country: None (occurrence: None)
  Receive Date: 20040630
  Receipt Date: 20040325
  Transmission Date: 20050107
  Serious: No
  Sender: FDA-Public Use
  Company Number: 04P-163-0254727-00

PATIENT
  Age: 57 Year
  Sex: Female

DRUGS (11)
  1. HUMIRA [Suspect]
     Indication: RHEUMATOID ARTHRITIS
     Dosage: 40 MG, 1 IN 2 WK, SUBCUTANEOUS
     Route: 058
     Dates: start: 20030801, end: 20040204
  2. METHOTREXATE [Concomitant]
  3. SULFASALAZINE [Concomitant]
  4. FLUOXETINE HCL [Concomitant]
  5. QUETIAPINE [Concomitant]
  6. DIAZEPAM [Concomitant]
  7. CLONAZEPAM [Concomitant]
  8. FOLIC ACID [Concomitant]
  9. MULTI-VITAMINS [Concomitant]
  10. CALCIUM [Concomitant]
  11. ASCORBIC ACID [Concomitant]

REACTIONS (2)
  - ANKLE FRACTURE [None]
  - BRONCHITIS [None]
